FAERS Safety Report 6076757-3 (Version None)
Quarter: 2009Q1

REPORT INFORMATION
  Report Type: 
  Country: None (occurrence: None)
  Receive Date: 20090213
  Receipt Date: 20090209
  Transmission Date: 20090719
  Serious: Yes (Death, Life-Threatening)
  Sender: FDA-Public Use
  Company Number: US-CELGENEUS-163-20785-08111126

PATIENT
  Sex: Female

DRUGS (3)
  1. THALOMID [Suspect]
     Indication: MULTIPLE MYELOMA
     Route: 048
     Dates: start: 20081016, end: 20081023
  2. VELCADE [Concomitant]
     Indication: DRUG USE FOR UNKNOWN INDICATION
     Route: 065
     Dates: start: 20080601
  3. DEXAMETHASONE TAB [Concomitant]
     Indication: DRUG USE FOR UNKNOWN INDICATION
     Route: 065
     Dates: start: 20080601

REACTIONS (4)
  - ARRHYTHMIA [None]
  - DYSPNOEA [None]
  - MULTIPLE MYELOMA [None]
  - NO THERAPEUTIC RESPONSE [None]
